FAERS Safety Report 8769501 (Version 1)
Quarter: 2012Q4

REPORT INFORMATION
  Report Type: 
  Country: AU (occurrence: AU)
  Receive Date: 20120905
  Receipt Date: 20120905
  Transmission Date: 20130627
  Serious: Yes (Other)
  Sender: FDA-Public Use
  Company Number: AU-COVIDIEN/TYCO HEALTHCARE/MALLINCKRODT-T201203328

PATIENT
  Sex: Female

DRUGS (4)
  1. EXALGO EXTENDED RELEASE [Suspect]
     Indication: PAIN
     Dosage: 4 mg, UNK
     Route: 048
     Dates: start: 2012
  2. EXALGO EXTENDED RELEASE [Suspect]
     Dosage: 8 mg, UNK
     Route: 048
     Dates: start: 2012
  3. EXALGO EXTENDED RELEASE [Suspect]
     Dosage: UNK
  4. OXYCONTIN [Suspect]
     Indication: PRODUCT USED FOR UNKNOWN INDICATION
     Dosage: UNK

REACTIONS (4)
  - Confusional state [Unknown]
  - Hallucination [Unknown]
  - Memory impairment [Unknown]
  - Drug ineffective [Unknown]
